FAERS Safety Report 6142840-7 (Version None)
Quarter: 2009Q2

REPORT INFORMATION
  Report Type: 
  Country: None (occurrence: None)
  Receive Date: 20090403
  Receipt Date: 20090324
  Transmission Date: 20091009
  Serious: Yes (Congenital Anomaly, Other)
  Sender: FDA-Public Use
  Company Number: US-AMGEN-QUU340608

PATIENT
  Sex: Male

DRUGS (3)
  1. ENBREL [Suspect]
     Indication: PSORIATIC ARTHROPATHY
     Route: 064
     Dates: start: 20060921
  2. ENBREL [Suspect]
     Indication: PSORIASIS
  3. VITAMIN TAB [Concomitant]
     Route: 064
     Dates: start: 20061101

REACTIONS (2)
  - EXOMPHALOS [None]
  - PREMATURE BABY [None]
